FAERS Safety Report 6830746-7 (Version None)
Quarter: 2010Q3

REPORT INFORMATION
  Report Type: 
  Country: None (occurrence: None)
  Receive Date: 20100709
  Receipt Date: 20100709
  Transmission Date: 20110219
  Serious: Yes (Life-Threatening, Hospitalization)
  Sender: FDA-Public Use
  Company Number: None

PATIENT
  Age: 62 Year
  Sex: Male

DRUGS (1)
  1. ASPIRIN [Suspect]
     Indication: PAIN
     Dosage: 325 MG BID PO
     Route: 048
     Dates: end: 20100527

REACTIONS (4)
  - DIVERTICULUM [None]
  - GASTRIC HAEMORRHAGE [None]
  - INCORRECT DOSE ADMINISTERED [None]
  - LOWER GASTROINTESTINAL HAEMORRHAGE [None]
